FAERS Safety Report 15653047 (Version 1)
Quarter: 2018Q4

REPORT INFORMATION
  Report Type: Spontaneous
  Country: US (occurrence: US)
  Receive Date: 20181123
  Receipt Date: 20181123
  Transmission Date: 20190205
  Serious: No
  Sender: FDA-Public Use
  Company Number: US-NOVOPROD-607352

PATIENT
  Age: 83 Year
  Sex: Female
  Weight: 82.86 kg

DRUGS (2)
  1. NOVOLOG [Suspect]
     Active Substance: INSULIN ASPART
     Indication: TYPE 2 DIABETES MELLITUS
     Dosage: SLIDING SCALE
     Route: 058
     Dates: start: 2016, end: 20180621
  2. NOVOLOG [Suspect]
     Active Substance: INSULIN ASPART
     Dosage: SLIDING SCALE
     Route: 058
     Dates: start: 2018

REACTIONS (4)
  - Joint swelling [Recovered/Resolved]
  - Peripheral swelling [Not Recovered/Not Resolved]
  - Product dispensing error [Not Recovered/Not Resolved]
  - Expired product administered [Recovered/Resolved]

NARRATIVE: CASE EVENT DATE: 201805
